FAERS Safety Report 5944742-5 (Version None)
Quarter: 2008Q4

REPORT INFORMATION
  Report Type: 
  Country: None (occurrence: None)
  Receive Date: 20081107
  Receipt Date: 20081104
  Transmission Date: 20090506
  Serious: Yes (Hospitalization)
  Sender: FDA-Public Use
  Company Number: US-BRISTOL-MYERS SQUIBB COMPANY-14381396

PATIENT
  Age: 67 Year
  Sex: Male
  Weight: 81 kg

DRUGS (3)
  1. ERBITUX [Suspect]
     Indication: SQUAMOUS CELL CARCINOMA
     Dosage: 1ST CYC: 09SEP08 LAST DOSE: 07OCT08
     Dates: start: 20081007, end: 20081007
  2. CISPLATIN [Suspect]
     Indication: SQUAMOUS CELL CARCINOMA
     Dosage: 1ST CYC: 09SEP08 LAST DOSE: 07OCT08 DOSE REDUCED TO 50%
     Dates: start: 20081007, end: 20081007
  3. RADIATION THERAPY [Suspect]
     Indication: SQUAMOUS CELL CARCINOMA
     Dosage: 1DF=44GY NO.OF FRACTIONS:22 NO.OF ELASPSED DAYS:30
     Dates: start: 20081015, end: 20081015

REACTIONS (5)
  - CONFUSIONAL STATE [None]
  - HAEMOGLOBIN DECREASED [None]
  - MUSCULAR WEAKNESS [None]
  - PNEUMONIA [None]
  - PYREXIA [None]
